FAERS Safety Report 5571557-2 (Version None)
Quarter: 2007Q4

REPORT INFORMATION
  Report Type: 
  Country: None (occurrence: None)
  Receive Date: 20071221
  Receipt Date: 20071219
  Transmission Date: 20080405
  Serious: Yes (Hospitalization)
  Sender: FDA-Public Use
  Company Number: US-ELI_LILLY_AND_COMPANY-US200712003964

PATIENT
  Sex: Female

DRUGS (5)
  1. HUMALOG [Suspect]
     Indication: DIABETES MELLITUS
  2. PRIMIDONE [Concomitant]
     Dosage: 25 MG, DAILY (1/D)
  3. PRIMIDONE [Concomitant]
     Dosage: 50 MG, DAILY (1/D)
  4. PRIMIDONE [Concomitant]
     Dosage: 75 MG, DAILY (1/D)
  5. ANTIBIOTICS [Concomitant]
     Indication: INFECTION

REACTIONS (4)
  - BLOOD GLUCOSE DECREASED [None]
  - BREAST CANCER [None]
  - INFECTION [None]
  - TREMOR [None]
